FAERS Safety Report 20499936 (Version 1)
Quarter: 2022Q1

REPORT INFORMATION
  Report Type: Spontaneous
  Country: US (occurrence: US)
  Receive Date: 20220222
  Receipt Date: 20220222
  Transmission Date: 20220423
  Serious: No
  Sender: FDA-Public Use
  Company Number: US-UCBSA-2021036158

PATIENT
  Age: 17 Year
  Sex: Female

DRUGS (2)
  1. LEVETIRACETAM [Suspect]
     Active Substance: LEVETIRACETAM
     Indication: Idiopathic generalised epilepsy
     Dosage: UNKNOWN DOSE
  2. CLONAZEPAM [Concomitant]
     Active Substance: CLONAZEPAM
     Indication: Idiopathic generalised epilepsy
     Dosage: INCREASED DOSE

REACTIONS (2)
  - Neuropsychiatric symptoms [Unknown]
  - Drug ineffective [Unknown]
